FAERS Safety Report 24645148 (Version 1)
Quarter: 2024Q4

REPORT INFORMATION
  Report Type: Spontaneous
  Country: CN (occurrence: CN)
  Receive Date: 20241121
  Receipt Date: 20241121
  Transmission Date: 20250115
  Serious: Yes (Other)
  Sender: BEIGENE
  Company Number: CN-BEIGENE-BGN-2024-018430

PATIENT

DRUGS (10)
  1. TISLELIZUMAB [Suspect]
     Active Substance: TISLELIZUMAB
     Indication: Hepatocellular carcinoma
     Dosage: 200 MILLIGRAM
     Route: 041
     Dates: start: 20220512, end: 20220512
  2. Disodium Cantharidinate and Vitamin B6 [Concomitant]
     Indication: Hepatocellular carcinoma
     Dosage: 0.5 MILLIGRAM, QD
     Route: 041
     Dates: start: 20220509, end: 20220514
  3. OXALIPLATIN [Concomitant]
     Active Substance: OXALIPLATIN
     Dosage: 150 MILLIGRAM
     Dates: start: 20220511, end: 20220511
  4. FLUOROURACIL [Concomitant]
     Active Substance: FLUOROURACIL
     Dosage: 0.75 GRAM
     Dates: start: 20220511, end: 20220511
  5. EPIRUBICIN HYDROCHLORIDE [Concomitant]
     Active Substance: EPIRUBICIN HYDROCHLORIDE
     Dosage: 30 MILLIGRAM
     Dates: start: 20220511, end: 20220511
  6. LIPIODOL [Concomitant]
     Active Substance: ETHIODIZED OIL
     Indication: Angiogram
     Dosage: 3 MILLILITER
     Dates: start: 20220511, end: 20220511
  7. MAGNESIUM ISOGLYCYRRHIZINATE [Concomitant]
     Active Substance: MAGNESIUM ISOGLYCYRRHIZINATE
     Dosage: 200 MILLIGRAM, QD
     Route: 041
     Dates: start: 20220512, end: 20220514
  8. ADEMETIONINE BUTANEDISULFONATE [Concomitant]
     Active Substance: ADEMETIONINE BUTANEDISULFONATE
     Dosage: 1 GRAM, QD
     Route: 041
     Dates: start: 20220512, end: 20220514
  9. FAT EMULSION INJECTION (C14-24) [Concomitant]
     Indication: Nutritional supplementation
     Dosage: 250 MILLILITER
     Route: 041
     Dates: start: 20220512, end: 20220514
  10. FISH OIL [Concomitant]
     Active Substance: FISH OIL
     Indication: Nutritional supplementation
     Dosage: 100 MILLILITER
     Route: 041
     Dates: start: 20220512, end: 20220514

REACTIONS (1)
  - Anaphylactic shock [Recovering/Resolving]

NARRATIVE: CASE EVENT DATE: 20220512
